FAERS Safety Report 5748506-7 (Version None)
Quarter: 2008Q2

REPORT INFORMATION
  Report Type: 
  Country: None (occurrence: None)
  Receive Date: 20080521
  Receipt Date: 20080514
  Transmission Date: 20081010
  Serious: Yes (Other)
  Sender: FDA-Public Use
  Company Number: 2008012662

PATIENT
  Sex: Male
  Weight: 96.2 kg

DRUGS (7)
  1. ROGAINE 5 [Suspect]
     Indication: ALOPECIA
     Dosage: 1/2 CAP FULL 2X PER DAY (2 IN 1 D), TOPICAL
     Route: 061
     Dates: start: 20080314, end: 20080514
  2. COZAAR [Concomitant]
  3. DYAZIDE [Concomitant]
  4. NEXIUM [Concomitant]
  5. ADVAIR DISKUS 100/50 [Concomitant]
  6. SPIRIVA (TIOTROPOUM BROMIDE) [Concomitant]
  7. ALBUTEROL [Concomitant]

REACTIONS (5)
  - BACK DISORDER [None]
  - BODY HEIGHT DECREASED [None]
  - LYMPHADENOPATHY [None]
  - SKIN DISORDER [None]
  - SPLENOMEGALY [None]
